FAERS Safety Report 20228089 (Version 1)
Quarter: 2021Q4

REPORT INFORMATION
  Report Type: Report from Study
  Country: PA (occurrence: PA)
  Receive Date: 20211224
  Receipt Date: 20211224
  Transmission Date: 20220303
  Serious: Yes (Other)
  Sender: FDA-Public Use
  Company Number: PA-NOVARTISPH-NVSC2021PA293258

PATIENT
  Age: 79 Year
  Sex: Female

DRUGS (2)
  1. EXFORGE [Suspect]
     Active Substance: AMLODIPINE BESYLATE\VALSARTAN
     Indication: Product used for unknown indication
     Dosage: UNK (10/320 MG, START DATE- APPROXIMATELY 4 YEARS AGO)
     Route: 065
     Dates: end: 20210723
  2. EXFORGE [Suspect]
     Active Substance: AMLODIPINE BESYLATE\VALSARTAN
     Dosage: UNK (5/320 MG)
     Route: 065
     Dates: start: 20210723

REACTIONS (2)
  - Cardiac failure [Unknown]
  - Hypertension [Unknown]
